FAERS Safety Report 4326372-4 (Version None)
Quarter: 2004Q1

REPORT INFORMATION
  Report Type: 
  Country: None (occurrence: None)
  Receive Date: 20040330
  Receipt Date: 20040319
  Transmission Date: 20041129
  Serious: Yes (Hospitalization)
  Sender: FDA-Public Use
  Company Number: PHRM2004FR01283

PATIENT
  Age: 63 Year
  Sex: Female
  Weight: 64 kg

DRUGS (8)
  1. NEORAL [Suspect]
     Indication: NEPHROTIC SYNDROME
     Route: 048
     Dates: start: 20040106
  2. AVLOCARDYL [Concomitant]
     Route: 048
  3. CORTANCYL [Concomitant]
     Route: 048
  4. ESIDRIX [Concomitant]
     Route: 048
  5. LASIX [Concomitant]
     Route: 048
  6. VASTEN [Concomitant]
     Route: 048
  7. MOPRAL [Concomitant]
     Route: 048
  8. ATACAND [Concomitant]
     Route: 048

REACTIONS (5)
  - APHTHOUS STOMATITIS [None]
  - DYSPEPSIA [None]
  - NOCTURNAL DYSPNOEA [None]
  - ORAL DISCOMFORT [None]
  - SWELLING FACE [None]
